FAERS Safety Report 20171585 (Version 4)
Quarter: 2022Q2

REPORT INFORMATION
  Report Type: Report from Study
  Country: ES (occurrence: ES)
  Receive Date: 20211210
  Receipt Date: 20220414
  Transmission Date: 20220720
  Serious: Yes (Hospitalization)
  Sender: FDA-Public Use
  Company Number: ES-PFIZER INC-202101695724

PATIENT
  Age: 82 Year
  Sex: Male
  Weight: 66 kg

DRUGS (19)
  1. TALAZOPARIB [Suspect]
     Active Substance: TALAZOPARIB
     Indication: Prostate cancer
     Dosage: 0.5 MG, 1X/DAY
     Route: 048
     Dates: start: 20210922, end: 20211126
  2. ENZALUTAMIDE [Suspect]
     Active Substance: ENZALUTAMIDE
     Indication: Prostate cancer
     Dosage: 160 MG, 1X/DAY
     Route: 048
     Dates: start: 20210727, end: 20211126
  3. ASPIRIN [Concomitant]
     Active Substance: ASPIRIN
     Dosage: 100 MG, DAILY
     Route: 048
     Dates: start: 20211127, end: 20211201
  4. ATORVASTATIN [Concomitant]
     Active Substance: ATORVASTATIN
     Dosage: 20 MG, DAILY
     Route: 048
     Dates: start: 20211127, end: 20211130
  5. CALCIUM CARBONATE\VITAMIN D [Concomitant]
     Active Substance: CALCIUM CARBONATE\VITAMIN D
     Dosage: 1 DF, SINGLE
     Route: 048
     Dates: start: 20211128, end: 20211201
  6. ENALAPRIL [Concomitant]
     Active Substance: ENALAPRIL
     Dosage: 1 DF, DAILY
     Route: 048
     Dates: start: 20211126, end: 20211126
  7. ENALAPRIL [Concomitant]
     Active Substance: ENALAPRIL
     Dosage: 1 DF, DAILY
     Route: 048
     Dates: start: 20211130, end: 20211201
  8. ENOXAPARIN [Concomitant]
     Active Substance: ENOXAPARIN
     Dosage: 40 MG, DAILY
     Route: 058
     Dates: start: 20211128, end: 20211130
  9. SODIUM CHLORIDE [Concomitant]
     Active Substance: SODIUM CHLORIDE
     Dosage: UNK
     Dates: start: 20211201, end: 20211201
  10. FUROSEMIDE [Concomitant]
     Active Substance: FUROSEMIDE
     Dosage: 160 MG, DAILY
     Route: 042
     Dates: start: 20211127, end: 20211127
  11. FUROSEMIDE [Concomitant]
     Active Substance: FUROSEMIDE
     Dosage: 60 MG, DAILY
     Route: 042
     Dates: start: 20211128, end: 20211201
  12. DEXTROSE [Concomitant]
     Active Substance: DEXTROSE
     Dosage: 500 ML, DAILY
     Route: 042
     Dates: start: 20211201, end: 20211201
  13. OMEPRAZOLE [Concomitant]
     Active Substance: OMEPRAZOLE
     Dosage: 20 MG, DAILY
     Route: 048
     Dates: start: 20211126, end: 20211130
  14. OMEPRAZOLE [Concomitant]
     Active Substance: OMEPRAZOLE
     Dosage: 20 MG, DAILY
     Route: 042
     Dates: start: 20211201, end: 20211201
  15. ACETAMINOPHEN [Concomitant]
     Active Substance: ACETAMINOPHEN
     Dosage: 1 G, DAILY
     Route: 048
     Dates: start: 20211127, end: 20211127
  16. PIPERACILLIN AND TAZOBACTAM [Concomitant]
     Active Substance: PIPERACILLIN SODIUM\TAZOBACTAM SODIUM
     Dosage: 4 G, DAILY
     Route: 042
     Dates: start: 20211129, end: 20211129
  17. PIPERACILLIN AND TAZOBACTAM [Concomitant]
     Active Substance: PIPERACILLIN SODIUM\TAZOBACTAM SODIUM
     Dosage: 16 G, DAILY
     Dates: start: 20211130, end: 20211130
  18. PIPERACILLIN AND TAZOBACTAM [Concomitant]
     Active Substance: PIPERACILLIN SODIUM\TAZOBACTAM SODIUM
     Dosage: 12 MG, DAILY
     Route: 042
     Dates: start: 20211201, end: 20211201
  19. ASPARTIC ACID/POTASSIUM ASCORBATE [Concomitant]
     Dosage: 1 DF, SINGLE
     Route: 048
     Dates: start: 20211129, end: 20211201

REACTIONS (2)
  - Acute myocardial infarction [Recovered/Resolved]
  - Embolic stroke [Recovered/Resolved]

NARRATIVE: CASE EVENT DATE: 20211126
